FAERS Safety Report 24896860 (Version 1)
Quarter: 2025Q1

REPORT INFORMATION
  Report Type: Spontaneous
  Country: DE (occurrence: DE)
  Receive Date: 20250128
  Receipt Date: 20250128
  Transmission Date: 20250408
  Serious: No
  Sender: ASTELLAS
  Company Number: DE-ASTELLAS-2024-AER-007384

PATIENT
  Age: 61 Year
  Sex: Female

DRUGS (1)
  1. VEOZAH [Suspect]
     Active Substance: FEZOLINETANT
     Indication: Menopausal symptoms
     Dosage: ONCE DAILY FOR 45 DAYS
     Route: 048
     Dates: start: 20240516

REACTIONS (3)
  - Pancreatic enzymes increased [Unknown]
  - Hepatic enzyme abnormal [Unknown]
  - Drug ineffective [Unknown]
